FAERS Safety Report 8784783 (Version 1)
Quarter: 2012Q4

REPORT INFORMATION
  Report Type: Spontaneous
  Country: US (occurrence: None)
  Receive Date: 20120907
  Receipt Date: 20120907
  Transmission Date: 20130627
  Serious: Yes (Hospitalization)
  Sender: FDA-Public Use
  Company Number: None

PATIENT
  Age: 61 Year
  Sex: Female
  Weight: 103 kg

DRUGS (11)
  1. CARBOPLATIN [Suspect]
     Indication: BREAST CANCER
     Dosage: AUC6=672mg d1,
     Route: 042
     Dates: start: 20120830, end: 20120830
  2. ERIBULIN [Suspect]
     Dosage: 1.4mg/m2=2.75mg d1, 8
     Route: 042
     Dates: start: 20120830, end: 20120830
  3. CYMBALTA [Concomitant]
  4. ABILIFY [Concomitant]
  5. SEROQUEL [Concomitant]
  6. LUNESTA [Concomitant]
  7. OXYCODONE [Concomitant]
  8. SPIRONOLACTONE [Concomitant]
  9. TORSEMIDE [Concomitant]
  10. SYNTHROID [Concomitant]
  11. ZOFRAN [Concomitant]

REACTIONS (6)
  - Nausea [None]
  - Vomiting [None]
  - Mucosal inflammation [None]
  - Urinary tract infection bacterial [None]
  - Tongue ulceration [None]
  - Catheter site erythema [None]
